FAERS Safety Report 10085144 (Version 1)
Quarter: 2014Q2

REPORT INFORMATION
  Report Type: Report from Study
  Country: KR (occurrence: KR)
  Receive Date: 20140417
  Receipt Date: 20140417
  Transmission Date: 20141212
  Serious: Yes (Hospitalization)
  Sender: FDA-Public Use
  Company Number: KR-SA-2014SA046282

PATIENT
  Age: 23 Year
  Sex: Female

DRUGS (8)
  1. RENAGEL [Suspect]
     Indication: HYPERPHOSPHATAEMIA
     Dosage: 4 TABLETS OF 800 MG
     Route: 048
     Dates: start: 20121227
  2. MIRCERA [Concomitant]
     Dates: start: 20140212
  3. PRITOR [Concomitant]
     Route: 048
  4. DILATREND [Concomitant]
     Route: 048
  5. REGPARA [Concomitant]
     Route: 048
     Dates: start: 20140212
  6. CALCITRIOL [Concomitant]
     Route: 048
     Dates: start: 20120711
  7. BARNIDIPINE HYDROCHLORIDE [Concomitant]
     Route: 048
     Dates: start: 20120711
  8. ASCORBIC ACID/FOLIC ACID/VITAMIN B NOS [Concomitant]

REACTIONS (1)
  - Pyelonephritis acute [Unknown]
